FAERS Safety Report 4749868-X (Version None)
Quarter: 2005Q3

REPORT INFORMATION
  Report Type: 
  Country: None (occurrence: None)
  Receive Date: 20050818
  Receipt Date: 20050805
  Transmission Date: 20060218
  Serious: Yes (Other)
  Sender: FDA-Public Use
  Company Number: KII-2005-0017873

PATIENT
  Age: 13 Year
  Sex: Male

DRUGS (5)
  1. OXYCONTIN [Suspect]
     Dosage: SEE TEXT, ORAL
     Route: 048
  2. BENZODIAZEPINE DERIVATES [Suspect]
     Dosage: SEE TEXT, ORAL
     Route: 048
  3. CARISOPRODOL (CARISOPRODOL) [Suspect]
     Dosage: SEE TEXT, ORAL
     Route: 048
  4. METHADONE HCL [Suspect]
     Dosage: SEE TEXT, ORAL
     Route: 048
  5. ETHANOL (ETHANOL) [Suspect]
     Dosage: ORAL
     Route: 048

REACTIONS (6)
  - COORDINATION ABNORMAL [None]
  - DYSARTHRIA [None]
  - INTENTIONAL MISUSE [None]
  - LETHARGY [None]
  - LOSS OF CONSCIOUSNESS [None]
  - POLYSUBSTANCE ABUSE [None]
